FAERS Safety Report 13255730 (Version 1)
Quarter: 2017Q1

REPORT INFORMATION
  Report Type: Spontaneous
  Country: US (occurrence: US)
  Receive Date: 20170218
  Receipt Date: 20170218
  Transmission Date: 20170428
  Serious: Yes (Disabling)
  Sender: FDA-Public Use
  Company Number: None

PATIENT
  Age: 29 Year
  Sex: Male
  Weight: 81 kg

DRUGS (7)
  1. LIQUID MAGNESIUM [Concomitant]
  2. MULTIVITAMINE ULTRA PREVENTATIVE III [Concomitant]
  3. LEVOFLOXACIN 750 MG TABLET [Suspect]
     Active Substance: LEVOFLOXACIN
     Indication: PSEUDOMONAS TEST POSITIVE
     Dosage: ?          QUANTITY:7 TABLET(S);?
     Route: 048
     Dates: start: 20161021, end: 20161021
  4. BONE BROTH COLLAGEN [Concomitant]
  5. VITAMIN D3 [Concomitant]
     Active Substance: CHOLECALCIFEROL
  6. ALPHA LIPOIC ACID [Concomitant]
     Active Substance: .ALPHA.-LIPOIC ACID
  7. MITOQ [Concomitant]

REACTIONS (10)
  - Impaired work ability [None]
  - Impaired healing [None]
  - Muscle disorder [None]
  - Asthenia [None]
  - Joint injury [None]
  - Tendon pain [None]
  - Mobility decreased [None]
  - Muscular weakness [None]
  - Tendon disorder [None]
  - Arthropathy [None]

NARRATIVE: CASE EVENT DATE: 20161024
